FAERS Safety Report 5719770-5 (Version None)
Quarter: 2008Q2

REPORT INFORMATION
  Report Type: 
  Country: None (occurrence: None)
  Receive Date: 20080428
  Receipt Date: 20070530
  Transmission Date: 20081010
  Serious: No
  Sender: FDA-Public Use
  Company Number: A0648868A

PATIENT
  Age: 57 Year
  Sex: Female

DRUGS (6)
  1. ZOFRAN [Suspect]
     Indication: PROPHYLAXIS OF NAUSEA AND VOMITING
     Dosage: 8MG THREE TIMES PER DAY
     Route: 048
     Dates: start: 20040101
  2. CHEMOTHERAPY [Concomitant]
  3. CISPLATIN [Concomitant]
  4. CARBOPLATIN [Concomitant]
  5. DECADRON [Concomitant]
  6. ATIVAN [Concomitant]

REACTIONS (4)
  - DRUG INEFFECTIVE [None]
  - DYSGEUSIA [None]
  - NAUSEA [None]
  - VOMITING [None]
